FAERS Safety Report 5580790-5 (Version None)
Quarter: 2007Q4

REPORT INFORMATION
  Report Type: 
  Country: None (occurrence: None)
  Receive Date: 20071130
  Receipt Date: 20070822
  Transmission Date: 20080405
  Serious: No
  Sender: FDA-Public Use
  Company Number: US200707003300

PATIENT
  Age: 66 Year
  Sex: Male

DRUGS (11)
  1. BYETTA [Suspect]
     Indication: WEIGHT CONTROL
     Dosage: 5 UG, 2/D, SUBCUTANEOUS ; 10 UG, 2/D, SUBCUTANEOUS
     Route: 058
     Dates: start: 20061101, end: 20061201
  2. BYETTA [Suspect]
     Indication: WEIGHT CONTROL
     Dosage: 5 UG, 2/D, SUBCUTANEOUS ; 10 UG, 2/D, SUBCUTANEOUS
     Route: 058
     Dates: start: 20061201, end: 20070115
  3. METFORMIN HCL [Concomitant]
  4. ADDERALL (AMFETAMINE ASPARTATE, AMFETAMINE SULFATE, DEXAMFETAMINE SACC [Concomitant]
  5. LISINOPRIL [Concomitant]
  6. LIPITOR [Concomitant]
  7. ASPIRIN [Concomitant]
  8. VIAGRA [Concomitant]
  9. GLUCOSAMINE W/METHYLSULFONYLMETHANE (GLUCOSAMINE, METHYLSULFONYLMETHAN [Concomitant]
  10. VITAMIN B [Concomitant]
  11. ASCORBIC ACID [Concomitant]

REACTIONS (4)
  - ABDOMINAL PAIN UPPER [None]
  - MENTAL DISORDER [None]
  - SUICIDAL IDEATION [None]
  - WEIGHT DECREASED [None]
